FAERS Safety Report 22370239 (Version 2)
Quarter: 2023Q2

REPORT INFORMATION
  Report Type: Spontaneous
  Country: US (occurrence: US)
  Receive Date: 20230526
  Receipt Date: 20230622
  Transmission Date: 20230722
  Serious: Yes (Hospitalization)
  Sender: FDA-Public Use
  Company Number: US-BRISTOL-MYERS SQUIBB COMPANY-2023-071984

PATIENT
  Age: 69 Year
  Sex: Female
  Weight: 86.18 kg

DRUGS (2)
  1. POMALYST [Suspect]
     Active Substance: POMALIDOMIDE
     Indication: Plasma cell myeloma
     Dosage: DAILY FOR 21DAYS
     Route: 048
     Dates: start: 20230301
  2. POMALYST [Suspect]
     Active Substance: POMALIDOMIDE
     Dosage: QD (EVERY DAY) 21DAYS ON 7DAYS OFF
     Route: 048

REACTIONS (1)
  - Hospitalisation [Unknown]
